FAERS Safety Report 17928665 (Version 1)
Quarter: 2020Q2

REPORT INFORMATION
  Report Type: Report from Study
  Country: US (occurrence: US)
  Receive Date: 20200623
  Receipt Date: 20200623
  Transmission Date: 20200714
  Serious: Yes (Other)
  Sender: FDA-Public Use
  Company Number: US-BRISTOL-MYERS SQUIBB COMPANY-BMS-2020-039263

PATIENT
  Sex: Male

DRUGS (1)
  1. TRIAMCINOLONE ACETONIDE. [Suspect]
     Active Substance: TRIAMCINOLONE ACETONIDE
     Indication: PRODUCT USED FOR UNKNOWN INDICATION
     Dosage: 10 MILLIGRAM
     Route: 065

REACTIONS (17)
  - Deafness [Unknown]
  - Headache [Unknown]
  - Arthropod bite [Unknown]
  - Infection [Unknown]
  - Pain [Unknown]
  - Skin disorder [Unknown]
  - Abscess [Unknown]
  - Blister [Unknown]
  - Hyperacusis [Unknown]
  - Ear discomfort [Unknown]
  - Tinnitus [Unknown]
  - Intentional product use issue [Unknown]
  - Asthma [Unknown]
  - Dysphagia [Unknown]
  - Pharyngeal swelling [Unknown]
  - Eye abscess [Unknown]
  - Muscle spasms [Unknown]
